FAERS Safety Report 11061644 (Version 1)
Quarter: 2015Q2

REPORT INFORMATION
  Report Type: Spontaneous
  Country: US (occurrence: None)
  Receive Date: 20150422
  Receipt Date: 20150422
  Transmission Date: 20150821
  Serious: Yes (Other)
  Sender: FDA-Public Use
  Company Number: ADR-2015-00354

PATIENT
  Age: 61 Year
  Sex: Male

DRUGS (9)
  1. METFORMIN [Suspect]
     Active Substance: METFORMIN HYDROCHLORIDE
  2. ASPIRIN. [Suspect]
     Active Substance: ASPIRIN
  3. LYRICA [Suspect]
     Active Substance: PREGABALIN
  4. FENTANYL INTRATHECAL [Suspect]
     Active Substance: FENTANYL
  5. XARTEMIS XR [Suspect]
     Active Substance: ACETAMINOPHEN\OXYCODONE HYDROCHLORIDE
  6. LASIX [Suspect]
     Active Substance: FUROSEMIDE
  7. BACLOFEN INTRATHECAL [Suspect]
     Active Substance: BACLOFEN
     Indication: PAIN
  8. BUPIVACAINE INTRATHECAL [Suspect]
     Active Substance: BUPIVACAINE
  9. COUMADIN [Suspect]
     Active Substance: WARFARIN SODIUM

REACTIONS (8)
  - Fall [None]
  - Facial bones fracture [None]
  - Blood pressure decreased [None]
  - Paraesthesia [None]
  - Device issue [None]
  - Discomfort [None]
  - Pulmonary thrombosis [None]
  - Clavicle fracture [None]

NARRATIVE: CASE EVENT DATE: 20130816
